FAERS Safety Report 24020748 (Version 1)
Quarter: 2024Q2

REPORT INFORMATION
  Report Type: Spontaneous
  Country: FR (occurrence: FR)
  Receive Date: 20240627
  Receipt Date: 20240627
  Transmission Date: 20240716
  Serious: Yes (Hospitalization)
  Sender: FDA-Public Use
  Company Number: None

PATIENT
  Age: 80 Year
  Sex: Female

DRUGS (6)
  1. TICAGRELOR [Suspect]
     Active Substance: TICAGRELOR
     Indication: Acute myocardial infarction
     Dosage: 90 MILLIGRAM, QD
     Route: 048
     Dates: start: 20240511, end: 20240521
  2. ISOSORBIDE [Suspect]
     Active Substance: ISOSORBIDE
     Indication: Acute myocardial infarction
     Dosage: UNK
     Route: 042
     Dates: start: 20240511, end: 20240511
  3. LOVENOX [Suspect]
     Active Substance: ENOXAPARIN SODIUM
     Indication: Acute myocardial infarction
     Dosage: 3000 INTERNATIONAL UNIT
     Route: 042
     Dates: start: 20240511, end: 20240511
  4. IOMERON [Suspect]
     Active Substance: IOMEPROL
     Indication: Angiocardiogram
     Dosage: UNK
     Route: 042
     Dates: start: 20240511, end: 20240511
  5. ASPIRIN [Concomitant]
     Active Substance: ASPIRIN
     Indication: Acute myocardial infarction
     Dosage: 75 MILLIGRAM, QD
     Route: 048
     Dates: start: 20240511
  6. ATORVASTATIN [Concomitant]
     Active Substance: ATORVASTATIN
     Indication: Acute myocardial infarction
     Dosage: UNK
     Route: 048
     Dates: start: 20240512, end: 20240521

REACTIONS (1)
  - Drug reaction with eosinophilia and systemic symptoms [Recovered/Resolved]

NARRATIVE: CASE EVENT DATE: 20240520
